FAERS Safety Report 13462880 (Version 7)
Quarter: 2017Q3

REPORT INFORMATION
  Report Type: Report from Study
  Country: US (occurrence: US)
  Receive Date: 20170420
  Receipt Date: 20170721
  Transmission Date: 20171127
  Serious: Yes (Other)
  Sender: FDA-Public Use
  Company Number: US-GILEAD-2017-0259263

PATIENT
  Age: 76 Year
  Sex: Female

DRUGS (10)
  1. UPTRAVI [Suspect]
     Active Substance: SELEXIPAG
     Dosage: 600 UG, BID
     Route: 065
  2. ELIQUIS [Concomitant]
     Active Substance: APIXABAN
  3. UPTRAVI [Suspect]
     Active Substance: SELEXIPAG
     Dosage: 1200 UG, BID
     Route: 065
  4. AMBRISENTAN [Suspect]
     Active Substance: AMBRISENTAN
     Dosage: 5 MG, QD
     Route: 065
  5. AMBRISENTAN [Suspect]
     Active Substance: AMBRISENTAN
     Indication: PRODUCT USED FOR UNKNOWN INDICATION
     Dosage: 10 MG, QD
     Route: 065
     Dates: start: 20160811
  6. UPTRAVI [Suspect]
     Active Substance: SELEXIPAG
     Dosage: 1400 UG, BID
     Route: 065
  7. UPTRAVI [Suspect]
     Active Substance: SELEXIPAG
     Indication: PRODUCT USED FOR UNKNOWN INDICATION
     Dosage: 800 UG, UNK
     Route: 065
  8. UPTRAVI [Suspect]
     Active Substance: SELEXIPAG
     Dosage: 1600 MG, BID
     Route: 065
  9. LIPITOR [Suspect]
     Active Substance: ATORVASTATIN CALCIUM
     Indication: BLOOD CHOLESTEROL ABNORMAL
     Dosage: UNK
     Route: 065
  10. UPTRAVI [Suspect]
     Active Substance: SELEXIPAG
     Dosage: 400 UG, BID
     Route: 065

REACTIONS (29)
  - Bone pain [Not Recovered/Not Resolved]
  - Muscular weakness [Unknown]
  - Weight increased [Unknown]
  - Malaise [Not Recovered/Not Resolved]
  - Pain in extremity [Not Recovered/Not Resolved]
  - Pain [Recovering/Resolving]
  - Malaise [Unknown]
  - Discomfort [Not Recovered/Not Resolved]
  - Insomnia [Not Recovered/Not Resolved]
  - Myalgia [Not Recovered/Not Resolved]
  - Ear discomfort [Not Recovered/Not Resolved]
  - Pain in jaw [Recovering/Resolving]
  - Cardiac discomfort [Unknown]
  - Feeding disorder [Unknown]
  - Fatigue [Not Recovered/Not Resolved]
  - Tinnitus [Not Recovered/Not Resolved]
  - Ear pruritus [Not Recovered/Not Resolved]
  - Dyspnoea [Not Recovered/Not Resolved]
  - Hot flush [Not Recovered/Not Resolved]
  - Feeling of body temperature change [Not Recovered/Not Resolved]
  - Headache [Not Recovered/Not Resolved]
  - Hypoacusis [Not Recovered/Not Resolved]
  - Restlessness [Unknown]
  - Walking aid user [Not Recovered/Not Resolved]
  - Oxygen saturation decreased [Unknown]
  - Feeling abnormal [Not Recovered/Not Resolved]
  - Paranasal sinus hypersecretion [Not Recovered/Not Resolved]
  - Ear pain [Not Recovered/Not Resolved]
  - Arthralgia [Unknown]
